FAERS Safety Report 6720600 (Version 9)
Quarter: 2013Q2

REPORT INFORMATION
  Report Type: Spontaneous
  Country: US (occurrence: US)
  Receive Date: 20080807
  Receipt Date: 20130520
  Transmission Date: 20140414
  Serious: Yes (Death, Other)
  Sender: FDA-Public Use
  Company Number: US-BAYER-200829340NA

PATIENT
  Age: 48 Year
  Sex: Female
  Weight: 132 kg

DRUGS (60)
  1. MAGNEVIST [Suspect]
     Indication: CARDIAC IMAGING PROCEDURE
     Dosage: UNK
     Dates: start: 20040823, end: 20040823
  2. OMNISCAN [Suspect]
     Indication: NUCLEAR MAGNETIC RESONANCE IMAGING
     Dosage: 20 ML, ONCE
     Dates: start: 20000816, end: 20000816
  3. OPTIMARK [Suspect]
     Indication: NUCLEAR MAGNETIC RESONANCE IMAGING
  4. MULTIHANCE [GADOBENIC ACID MEGLUMINE] [Suspect]
     Indication: NUCLEAR MAGNETIC RESONANCE IMAGING
  5. PROHANCE [GADOTERIDOL] [Suspect]
     Indication: NUCLEAR MAGNETIC RESONANCE IMAGING
  6. GADOLINIUM IN UNSPECIFIED DRUG [Suspect]
     Indication: NUCLEAR MAGNETIC RESONANCE IMAGING
     Dosage: UNK UNK, ONCE
     Dates: start: 20031204, end: 20031204
  7. PROTONIX [Concomitant]
  8. ADVAIR [Concomitant]
  9. XOPENEX [Concomitant]
  10. SINGULAIR [Concomitant]
  11. NEURONTIN [Concomitant]
  12. ELAVIL [Concomitant]
  13. SEROQUEL [Concomitant]
  14. METOPROLOL [Concomitant]
  15. LASIX [Concomitant]
  16. ALTACE [Concomitant]
  17. ALDACTONE [POTASSIUM CANRENOATE] [Concomitant]
  18. PREDNISONE [Concomitant]
  19. ONE-A-DAY [MINERALS NOS,VITAMINS NOS] [Concomitant]
  20. IMITREX [Concomitant]
  21. VICODIN [Concomitant]
  22. LIDODERM [Concomitant]
  23. VAGIFEM [Concomitant]
  24. TYLENOL W/CODEINE NO. 4 [Concomitant]
  25. AMITRIPTYLINE [Concomitant]
  26. TEMAZEPAM [Concomitant]
  27. SPIRONOLACTONE [Concomitant]
  28. MEXILETINE [Concomitant]
  29. AMBIEN [Concomitant]
  30. COUMADIN [Concomitant]
  31. SINGULAIR [Concomitant]
  32. METOPROLOL [Concomitant]
  33. NEURONTIN [Concomitant]
  34. PROTONIX [Concomitant]
  35. LEVOTHYROXINE [Concomitant]
  36. PHENERGAN [Concomitant]
  37. AMIODARONE [Concomitant]
  38. POTASSIUM CHLORIDE [Concomitant]
  39. HYDROCODONE [Concomitant]
  40. MAGNESIUM OXIDE [Concomitant]
  41. SILDENAFIL CITRATE [Concomitant]
  42. NOVOLIN [INSULIN] [Concomitant]
  43. EFFEXOR XR [Concomitant]
  44. NOVOLOG [Concomitant]
  45. LASIX [Concomitant]
  46. METOLAZONE [Concomitant]
  47. DIGOXIN [Concomitant]
  48. VITAMINS [Concomitant]
  49. HYZAAR [Concomitant]
  50. LIPITOR [Concomitant]
  51. PLAVIX [Concomitant]
  52. IMITREX [Concomitant]
  53. OXYCONTIN [Concomitant]
  54. ZOLOFT [Concomitant]
  55. XANAX [Concomitant]
  56. AVALIDE [Concomitant]
  57. FLECAINIDE [Concomitant]
  58. COREG [Concomitant]
  59. JANUVIA [Concomitant]
  60. METFORMIN [Concomitant]

REACTIONS (18)
  - Nephrogenic systemic fibrosis [Unknown]
  - Injury [Unknown]
  - Pain [Unknown]
  - Anxiety [Unknown]
  - General physical health deterioration [Unknown]
  - Emotional distress [Unknown]
  - Mobility decreased [Unknown]
  - Paraesthesia [Unknown]
  - Pain in extremity [Unknown]
  - Skin discolouration [Unknown]
  - Muscle spasms [Unknown]
  - Skin hypopigmentation [Unknown]
  - Lower extremity mass [Unknown]
  - Rash [Unknown]
  - Skin ulcer [Unknown]
  - Joint swelling [Unknown]
  - Musculoskeletal stiffness [Unknown]
  - Pain [Unknown]
